FAERS Safety Report 8069831-3 (Version None)
Quarter: 2012Q1

REPORT INFORMATION
  Report Type: 
  Country: None (occurrence: None)
  Receive Date: 20120125
  Receipt Date: 20120125
  Transmission Date: 20120608
  Serious: Yes (Other)
  Sender: FDA-Public Use
  Company Number: None

PATIENT
  Age: 44 Year
  Sex: Female
  Weight: 57.606 kg

DRUGS (1)
  1. GABAPENTIN [Suspect]
     Indication: MIGRAINE
     Dosage: 300 MG
     Route: 048
     Dates: start: 20110620, end: 20120115

REACTIONS (1)
  - BLOOD PRESSURE DIASTOLIC INCREASED [None]
